FAERS Safety Report 8828313 (Version 2)
Quarter: 2013Q2

REPORT INFORMATION
  Report Type: Report from Study
  Country: DE (occurrence: DE)
  Receive Date: 20121005
  Receipt Date: 20130410
  Transmission Date: 20140414
  Serious: Yes (Hospitalization, Disabling)
  Sender: FDA-Public Use
  Company Number: DE-ABBOTT-12P-062-0988432-00

PATIENT
  Age: 87 Year
  Sex: Male
  Weight: 78 kg

DRUGS (10)
  1. ZEMPLAR [Suspect]
     Indication: HYPERPARATHYROIDISM SECONDARY
     Route: 042
     Dates: start: 20110715
  2. ACETYLSALICYLIC ACID [Concomitant]
     Indication: PRODUCT USED FOR UNKNOWN INDICATION
  3. METOPROLOL [Concomitant]
     Indication: PRODUCT USED FOR UNKNOWN INDICATION
     Dosage: FREQUENCY: 0.5 IN 1 DAY
  4. DIGITOXIN [Concomitant]
     Indication: PRODUCT USED FOR UNKNOWN INDICATION
  5. SIMVASTATIN [Concomitant]
     Indication: PRODUCT USED FOR UNKNOWN INDICATION
  6. OMEPRAZOLE [Concomitant]
     Indication: PRODUCT USED FOR UNKNOWN INDICATION
  7. BICANORM [Concomitant]
     Indication: PRODUCT USED FOR UNKNOWN INDICATION
  8. CARBAMAZEPINE [Concomitant]
     Indication: PRODUCT USED FOR UNKNOWN INDICATION
  9. ADDIVIT [Concomitant]
     Indication: PRODUCT USED FOR UNKNOWN INDICATION
  10. CARENAL [Concomitant]
     Indication: PRODUCT USED FOR UNKNOWN INDICATION

REACTIONS (4)
  - Vascular shunt [Recovered/Resolved]
  - Arterial occlusive disease [Recovered/Resolved]
  - Leg amputation [Recovered/Resolved]
  - Shunt stenosis [Recovered/Resolved]
